FAERS Safety Report 10929531 (Version 2)
Quarter: 2015Q1

REPORT INFORMATION
  Report Type: Spontaneous
  Country: GB (occurrence: None)
  Receive Date: 20150317
  Receipt Date: 20150326
  Transmission Date: 20150721
  Serious: Yes (Death)
  Sender: FDA-Public Use
  Company Number: 2015FE00790

PATIENT

DRUGS (1)
  1. PROPESS (DINOPROSTONE) VAGINAL DELIVERY SYSTEM [Suspect]
     Active Substance: DINOPROSTONE
     Indication: LABOUR INDUCTION
     Route: 064
     Dates: start: 20150221

REACTIONS (3)
  - Maternal drugs affecting foetus [None]
  - Foetal death [None]
  - Sudden infant death syndrome [None]

NARRATIVE: CASE EVENT DATE: 20150221
